FAERS Safety Report 25897269 (Version 1)
Quarter: 2025Q4

REPORT INFORMATION
  Report Type: Report from Study
  Country: CA (occurrence: CA)
  Receive Date: 20251008
  Receipt Date: 20251008
  Transmission Date: 20260117
  Serious: Yes (Other)
  Sender: CSL BEHRING
  Company Number: CA-BEH-2025215668

PATIENT
  Sex: Female
  Weight: 155 kg

DRUGS (2)
  1. PRIVIGEN [Suspect]
     Active Substance: HUMAN IMMUNOGLOBULIN G
     Indication: Chronic inflammatory demyelinating polyradiculoneuropathy
     Dosage: 30 G, EVERY 10-11 DAYS
     Route: 042
     Dates: start: 201703
  2. PRIVIGEN [Suspect]
     Active Substance: HUMAN IMMUNOGLOBULIN G
     Dosage: UNK UNK, QOW
     Route: 065

REACTIONS (8)
  - Therapeutic response shortened [Unknown]
  - Chronic inflammatory demyelinating polyradiculoneuropathy [Unknown]
  - Loss of personal independence in daily activities [Not Recovered/Not Resolved]
  - Injection site reaction [Not Recovered/Not Resolved]
  - Chills [Not Recovered/Not Resolved]
  - Pyrexia [Not Recovered/Not Resolved]
  - Headache [Not Recovered/Not Resolved]
  - Migraine [Not Recovered/Not Resolved]

NARRATIVE: CASE EVENT DATE: 20220601
